FAERS Safety Report 4317300-6 (Version None)
Quarter: 2004Q1

REPORT INFORMATION
  Report Type: 
  Country: None (occurrence: None)
  Receive Date: 20040312
  Receipt Date: 20040301
  Transmission Date: 20041129
  Serious: Yes (Hospitalization)
  Sender: FDA-Public Use
  Company Number: 2003121499

PATIENT
  Age: 62 Year
  Sex: Female
  Weight: 64.8 kg

DRUGS (8)
  1. NORVASC [Suspect]
     Indication: HYPERTENSION
     Dosage: 5 MG DAILY, ORAL
     Route: 048
     Dates: start: 20031011, end: 20031128
  2. FOMINOBEN HYDROCHLORIDE (FOMINOBEN HYDROCHLORIDE) [Concomitant]
  3. CARBOCISTEINE (CARBOCISTEINE) [Concomitant]
  4. CANDESARTAN CILEXETIL (CANDESARTAN CILEXETIL) [Concomitant]
  5. DICLOFENAC SODIUM [Concomitant]
  6. METOPROLOL TARTRATE [Concomitant]
  7. SODIUM GUALENATE (SODIUM GUALENATE) [Concomitant]
  8. ETIZOLAM (ETIZOLAM) [Concomitant]

REACTIONS (9)
  - BACK PAIN [None]
  - BLOOD LACTATE DEHYDROGENASE INCREASED [None]
  - BLOOD PRESSURE INADEQUATELY CONTROLLED [None]
  - COUGH [None]
  - DECREASED APPETITE [None]
  - HEPATIC FUNCTION ABNORMAL [None]
  - HEPATITIS [None]
  - NAUSEA [None]
  - PYREXIA [None]
